FAERS Safety Report 7679594-9 (Version None)
Quarter: 2011Q3

REPORT INFORMATION
  Report Type: 
  Country: None (occurrence: None)
  Receive Date: 20110809
  Receipt Date: 20110725
  Transmission Date: 20111222
  Serious: Yes (Hospitalization)
  Sender: FDA-Public Use
  Company Number: DSM-2011-00720

PATIENT
  Age: 82 Year
  Sex: Female

DRUGS (7)
  1. PROPRANOLOL HCL [Suspect]
     Indication: PRODUCT USED FOR UNKNOWN INDICATION
     Dates: end: 20110525
  2. LASILIX (FUROSEMIDE) (FUROSEMIDE) [Concomitant]
  3. CACIT D3 (COLECALCIFEROL, CALCIUM CARBONATE) (COLECALCIFEROL CARBONATE [Concomitant]
  4. ALTEIS (OLMESARTAN MEDOXOMIL) (OLMESARTAN MEDOXOMIL) [Suspect]
     Indication: PRODUCT USED FOR UNKNOWN INDICATION
     Dosage: ORAL
     Route: 048
     Dates: end: 20110527
  5. ARICEPT [Suspect]
     Indication: DEMENTIA ALZHEIMER'S TYPE
     Dosage: ORAL
     Route: 048
     Dates: start: 20101103, end: 20110525
  6. COVERSYL (PERINDOPRIL ARGININE) (PERINDOPRIL ARGININE) [Concomitant]
  7. PREVISCAN (PENTOXIFYLLINE) (PENTOXYIFYLLINE) [Concomitant]

REACTIONS (3)
  - NAUSEA [None]
  - GENERAL PHYSICAL HEALTH DETERIORATION [None]
  - WEIGHT DECREASED [None]
